FAERS Safety Report 13498439 (Version 1)
Quarter: 2017Q2

REPORT INFORMATION
  Report Type: Spontaneous
  Country: HR (occurrence: HR)
  Receive Date: 20170501
  Receipt Date: 20170501
  Transmission Date: 20170830
  Serious: Yes (Hospitalization)
  Sender: FDA-Public Use
  Company Number: HR-ACCORD-050702

PATIENT
  Age: 70 Year
  Sex: Male

DRUGS (14)
  1. CHLORAMBUCIL [Suspect]
     Active Substance: CHLORAMBUCIL
     Indication: PRODUCT USED FOR UNKNOWN INDICATION
  2. MEDROL [Concomitant]
     Active Substance: METHYLPREDNISOLONE
  3. LOSARTIC [Concomitant]
     Active Substance: LOSARTAN POTASSIUM
  4. OMNIC [Concomitant]
     Active Substance: TAMSULOSIN HYDROCHLORIDE
  5. ALVESCO [Concomitant]
     Active Substance: CICLESONIDE
  6. TAFEN [Concomitant]
  7. CONTROLOC [Concomitant]
     Active Substance: PANTOPRAZOLE SODIUM
  8. MONTELUKAST [Concomitant]
     Active Substance: MONTELUKAST SODIUM
  9. HERPLEX [Concomitant]
     Active Substance: IDOXURIDINE
  10. VENTOLIN [Concomitant]
     Active Substance: ALBUTEROL SULFATE
  11. ALLOPURINOL. [Suspect]
     Active Substance: ALLOPURINOL
     Indication: PRODUCT USED FOR UNKNOWN INDICATION
  12. LERCANIL [Concomitant]
  13. RINOLAN [Concomitant]
     Active Substance: LORATADINE
  14. NORMABEL [Concomitant]
     Active Substance: DIAZEPAM

REACTIONS (1)
  - Mouth ulceration [Recovered/Resolved]
